FAERS Safety Report 15350656 (Version 1)
Quarter: 2018Q3

REPORT INFORMATION
  Report Type: Spontaneous
  Country: AU (occurrence: AU)
  Receive Date: 20180905
  Receipt Date: 20180905
  Transmission Date: 20181010
  Serious: Yes (Death)
  Sender: FDA-Public Use
  Company Number: AU-009507513-1808AUS013271

PATIENT
  Sex: Male

DRUGS (10)
  1. CYTARABINE. [Suspect]
     Active Substance: CYTARABINE
     Indication: ACUTE MYELOID LEUKAEMIA
     Dosage: 2000 MG/M2, CYCLICAL
     Route: 042
     Dates: start: 20121009
  2. SONIDEGIB PHOSPHATE [Suspect]
     Active Substance: SONIDEGIB PHOSPHATE
     Dosage: UNK
     Route: 065
     Dates: start: 20130925
  3. GUAIFENESIN. [Suspect]
     Active Substance: GUAIFENESIN
     Indication: ACUTE MYELOID LEUKAEMIA
     Dosage: 100 MG, TIW
     Route: 065
     Dates: start: 20130925
  4. IDARUBICIN HYDROCHLORIDE. [Suspect]
     Active Substance: IDARUBICIN HYDROCHLORIDE
     Dosage: 10 MG/M2, QD
     Route: 042
     Dates: start: 20121113
  5. AZACITIDINE. [Suspect]
     Active Substance: AZACITIDINE
     Indication: ACUTE MYELOID LEUKAEMIA
     Dosage: UNK
     Route: 065
     Dates: start: 20130304
  6. POSACONAZOLE [Suspect]
     Active Substance: POSACONAZOLE
     Dosage: 800 MG, DAILY (ALSO REPORTED AS 400 MG, BID)
     Route: 065
     Dates: start: 20130304
  7. FLUDARABINE PHOSPHATE. [Suspect]
     Active Substance: FLUDARABINE PHOSPHATE
     Dosage: 30 MG/M2, CYCLICAL
     Route: 042
     Dates: start: 20121009
  8. POSACONAZOLE [Suspect]
     Active Substance: POSACONAZOLE
     Dosage: 200 MG, TID
     Route: 065
     Dates: start: 20121113
  9. IDARUBICIN HYDROCHLORIDE. [Suspect]
     Active Substance: IDARUBICIN HYDROCHLORIDE
     Dosage: 110 MILLIGRAM/SQU, CYCLICAL
     Route: 042
     Dates: start: 20121009
  10. LENALIDOMIDE [Suspect]
     Active Substance: LENALIDOMIDE
     Indication: ACUTE MYELOID LEUKAEMIA
     Dosage: UNK
     Route: 065
     Dates: start: 20130304

REACTIONS (3)
  - Drug effect incomplete [Fatal]
  - Acute myeloid leukaemia recurrent [Fatal]
  - Disease recurrence [Fatal]
